FAERS Safety Report 4748533-2 (Version None)
Quarter: 2005Q3

REPORT INFORMATION
  Report Type: 
  Country: None (occurrence: None)
  Receive Date: 20050817
  Receipt Date: 20050817
  Transmission Date: 20060218
  Serious: Yes (Hospitalization)
  Sender: FDA-Public Use
  Company Number: None

PATIENT
  Sex: Female
  Weight: 53 kg

DRUGS (7)
  1. FLUDARABINE PHOSPHATE [Suspect]
     Indication: STEM CELL TRANSPLANT
     Dosage: 50 MG Q.D. IV
     Route: 042
     Dates: start: 20050317, end: 20050321
  2. MELPHALAN [Suspect]
     Dosage: 225 MG IV
     Route: 042
     Dates: start: 20050322
  3. CAMPATH [Suspect]
     Dosage: 20MG IV Q
     Route: 042
     Dates: start: 20050317, end: 20050321
  4. NEXIUM [Concomitant]
  5. TAMOXIFEN CITRATE [Concomitant]
  6. EPOGEN [Concomitant]
  7. PENTAMIDIN [Concomitant]

REACTIONS (2)
  - ABASIA [None]
  - BACK PAIN [None]
